FAERS Safety Report 20631558 (Version 1)
Quarter: 2022Q1

REPORT INFORMATION
  Report Type: Report from Study
  Country: CA (occurrence: CA)
  Receive Date: 20220324
  Receipt Date: 20220324
  Transmission Date: 20220423
  Serious: Yes (Other)
  Sender: FDA-Public Use
  Company Number: CA-BAUSCH-BL-2022-002433

PATIENT

DRUGS (2)
  1. CONTRAVE [Suspect]
     Active Substance: BUPROPION HYDROCHLORIDE\NALTREXONE HYDROCHLORIDE
     Indication: Weight control
     Dosage: 90/8 MG,
     Route: 048
     Dates: start: 2021
  2. CONTRAVE [Suspect]
     Active Substance: BUPROPION HYDROCHLORIDE\NALTREXONE HYDROCHLORIDE
     Dosage: 90/8 MG, 2 TAB Q AM, 1 TAB Q PM
     Route: 048
     Dates: start: 20211231

REACTIONS (13)
  - Haematochezia [Recovered/Resolved]
  - Faeces discoloured [Recovered/Resolved]
  - Bruxism [Not Recovered/Not Resolved]
  - Illness [Unknown]
  - Migraine [Recovered/Resolved]
  - Dyspepsia [Recovered/Resolved]
  - Vomiting [Recovered/Resolved]
  - Insomnia [Recovering/Resolving]
  - Constipation [Not Recovered/Not Resolved]
  - Hyperhidrosis [Recovered/Resolved]
  - Tremor [Recovered/Resolved]
  - Drug titration error [Unknown]
  - Product prescribing error [Unknown]

NARRATIVE: CASE EVENT DATE: 20211217
